FAERS Safety Report 15179336 (Version 1)
Quarter: 2018Q3

REPORT INFORMATION
  Report Type: Spontaneous
  Country: JP (occurrence: JP)
  Receive Date: 20180723
  Receipt Date: 20180723
  Transmission Date: 20181010
  Serious: Yes (Other)
  Sender: FDA-Public Use
  Company Number: JP-TEVA-2018-JP-929543

PATIENT
  Age: 63 Year
  Sex: Female

DRUGS (1)
  1. PREDNISOLONE. [Suspect]
     Active Substance: PREDNISOLONE
     Indication: BEHCET^S SYNDROME
     Dosage: 10 MILLIGRAM DAILY;
     Route: 048

REACTIONS (3)
  - Tenosynovitis [Recovering/Resolving]
  - Tendon rupture [Recovering/Resolving]
  - Joint capsule rupture [Recovering/Resolving]
